FAERS Safety Report 9134396 (Version 1)
Quarter: 2013Q1

REPORT INFORMATION
  Report Type: Spontaneous
  Country: BR (occurrence: BR)
  Receive Date: 20130304
  Receipt Date: 20130304
  Transmission Date: 20140127
  Serious: Yes (Other)
  Sender: FDA-Public Use
  Company Number: BR-ACCORD-016631

PATIENT
  Age: 47 Year
  Sex: Female
  Weight: 73.6 kg

DRUGS (5)
  1. PACLITAXEL [Suspect]
     Indication: BREAST CANCER METASTATIC
     Dosage: RECEIVED THREE CYCLE OF PACLITAXEL (175MG/M2)
     Route: 042
     Dates: start: 20121109, end: 20121227
  2. DEXAMETHASONE [Concomitant]
     Route: 042
     Dates: start: 20121227, end: 20121227
  3. DIPHENHYDRAMINE [Concomitant]
     Route: 042
     Dates: start: 20121227, end: 20121227
  4. RANITIDINE [Concomitant]
     Route: 042
     Dates: start: 20121227, end: 20121227
  5. ONDANSETRON [Concomitant]
     Route: 042
     Dates: start: 20121227, end: 20121227

REACTIONS (2)
  - Erythema [Recovered/Resolved]
  - Myalgia [Unknown]
